FAERS Safety Report 17525423 (Version 7)
Quarter: 2025Q2

REPORT INFORMATION
  Report Type: Report from Study
  Country: BR (occurrence: BR)
  Receive Date: 20200310
  Receipt Date: 20250613
  Transmission Date: 20250716
  Serious: Yes (Hospitalization, Other)
  Sender: TAKEDA
  Company Number: BR-TAKEDA-2020TUS013339

PATIENT
  Sex: Female

DRUGS (6)
  1. VEDOLIZUMAB [Suspect]
     Active Substance: VEDOLIZUMAB
     Indication: Colitis ulcerative
  2. VEDOLIZUMAB [Suspect]
     Active Substance: VEDOLIZUMAB
     Dosage: 300 MILLIGRAM, Q4WEEKS
     Dates: start: 20240407
  3. AZATHIOPRINE [Concomitant]
     Active Substance: AZATHIOPRINE
     Indication: Gastrointestinal disorder
  4. LOSARTAN [Concomitant]
     Active Substance: LOSARTAN
  5. FUROSEMIDE [Concomitant]
     Active Substance: FUROSEMIDE
  6. RIVOTRIL [Concomitant]
     Active Substance: CLONAZEPAM

REACTIONS (7)
  - Colitis ulcerative [Unknown]
  - Haemorrhage [Unknown]
  - Diarrhoea [Unknown]
  - Illness [Unknown]
  - Gastrointestinal inflammation [Unknown]
  - Therapy non-responder [Unknown]
  - Pyrexia [Unknown]
